FAERS Safety Report 18671723 (Version 1)
Quarter: 2020Q4

REPORT INFORMATION
  Report Type: Spontaneous
  Country: US (occurrence: US)
  Receive Date: 20201228
  Receipt Date: 20201228
  Transmission Date: 20210114
  Serious: Yes (Death, Hospitalization)
  Sender: FDA-Public Use
  Company Number: US-BAYER-2020-282367

PATIENT
  Age: 56 Year
  Sex: Male

DRUGS (3)
  1. ACETYLSALICYLIC ACID [Suspect]
     Active Substance: ASPIRIN
  2. CLOPIDOGREL [Interacting]
     Active Substance: CLOPIDOGREL BISULFATE
  3. HEPARIN [Interacting]
     Active Substance: HEPARIN SODIUM

REACTIONS (3)
  - Ischaemic cerebral infarction [Fatal]
  - Cerebral haemorrhage [Fatal]
  - Labelled drug-drug interaction medication error [Fatal]
